FAERS Safety Report 7051692-2 (Version None)
Quarter: 2010Q4

REPORT INFORMATION
  Report Type: 
  Country: None (occurrence: None)
  Receive Date: 20101018
  Receipt Date: 20101018
  Transmission Date: 20110411
  Serious: Yes (Life-Threatening)
  Sender: FDA-Public Use
  Company Number: None

PATIENT
  Sex: Female
  Weight: 68.0396 kg

DRUGS (1)
  1. ZOLPIDEM [Suspect]
     Indication: INSOMNIA
     Dates: start: 20091101, end: 20101015

REACTIONS (10)
  - ABNORMAL SLEEP-RELATED EVENT [None]
  - AMNESIA [None]
  - CONTUSION [None]
  - FALL [None]
  - HAEMORRHAGE [None]
  - PAIN [None]
  - SELF INJURIOUS BEHAVIOUR [None]
  - SLEEP SEX [None]
  - SLEEP-RELATED EATING DISORDER [None]
  - SOMNAMBULISM [None]
